FAERS Safety Report 7742497-5 (Version None)
Quarter: 2011Q3

REPORT INFORMATION
  Report Type: 
  Country: None (occurrence: None)
  Receive Date: 20110908
  Receipt Date: 20110908
  Transmission Date: 20111222
  Serious: No
  Sender: FDA-Public Use
  Company Number: None

PATIENT
  Age: 27 Year
  Sex: Male
  Weight: 84.6 kg

DRUGS (1)
  1. PRAZOSIN HCL [Suspect]
     Indication: POST-TRAUMATIC STRESS DISORDER
     Dosage: 2 MG PRN PO
     Route: 048
     Dates: start: 20110609, end: 20110827

REACTIONS (1)
  - PRIAPISM [None]
